FAERS Safety Report 8206239-1 (Version None)
Quarter: 2012Q1

REPORT INFORMATION
  Report Type: 
  Country: None (occurrence: None)
  Receive Date: 20120313
  Receipt Date: 20120228
  Transmission Date: 20120608
  Serious: Yes (Hospitalization, Other)
  Sender: FDA-Public Use
  Company Number: JP-ROCHE-1026116

PATIENT
  Sex: Female

DRUGS (14)
  1. LOXONIN [Concomitant]
     Indication: RHEUMATOID ARTHRITIS
     Route: 048
     Dates: start: 20101010, end: 20111009
  2. TRIAZOLAM [Concomitant]
     Route: 048
     Dates: start: 20101010, end: 20111009
  3. BENIDIPINE [Concomitant]
     Indication: HYPERTENSION
     Route: 048
     Dates: start: 20110130, end: 20110216
  4. VOLTAREN [Concomitant]
     Indication: RHEUMATOID ARTHRITIS
     Route: 061
     Dates: start: 20101010, end: 20110110
  5. MAGMITT [Concomitant]
     Route: 048
     Dates: start: 20110307, end: 20111009
  6. LANSOPRAZOLE [Concomitant]
     Indication: PROPHYLAXIS
     Route: 048
     Dates: start: 20101010, end: 20111009
  7. DOXAZOSIN MESYLATE [Concomitant]
     Route: 048
     Dates: start: 20110130, end: 20110216
  8. CONIEL [Concomitant]
     Indication: HYPERTENSION
     Route: 048
     Dates: start: 20110304, end: 20111009
  9. FAMOTIDINE [Concomitant]
     Indication: PROPHYLAXIS
     Route: 048
     Dates: start: 20110128, end: 20110202
  10. ACTEMRA [Suspect]
     Indication: RHEUMATOID ARTHRITIS
     Route: 041
     Dates: start: 20081010, end: 20110929
  11. PREDNISOLONE [Suspect]
     Indication: RHEUMATOID ARTHRITIS
     Route: 048
     Dates: start: 20080101, end: 20111009
  12. VOLTAREN [Concomitant]
     Route: 062
     Dates: start: 20101010, end: 20111009
  13. LIVALO [Concomitant]
     Indication: HYPERTENSION
     Route: 048
     Dates: start: 20101010, end: 20110130
  14. ASPIRIN [Concomitant]
     Route: 048
     Dates: start: 20101010, end: 20111009

REACTIONS (5)
  - RENAL IMPAIRMENT [None]
  - URINARY TRACT INFECTION [None]
  - HEPATIC FUNCTION ABNORMAL [None]
  - SEPSIS [None]
  - DISSEMINATED INTRAVASCULAR COAGULATION [None]
